FAERS Safety Report 9053908 (Version 1)
Quarter: 2013Q1

REPORT INFORMATION
  Report Type: Spontaneous
  Country: US (occurrence: None)
  Receive Date: 20130201
  Receipt Date: 20130201
  Transmission Date: 20140127
  Serious: Yes (Other)
  Sender: FDA-Public Use
  Company Number: None

PATIENT
  Age: 81 Year
  Sex: Female
  Weight: 54.89 kg

DRUGS (1)
  1. LACTULOSE [Suspect]
     Indication: CONSTIPATION
     Dosage: 2 TBSP - 3-4 X D  3-4 X D 1.0
     Dates: start: 20121119, end: 20130116

REACTIONS (9)
  - Blood pressure increased [None]
  - Abdominal pain [None]
  - Abdominal pain [None]
  - Crying [None]
  - Nausea [None]
  - Decreased appetite [None]
  - Retching [None]
  - Muscular weakness [None]
  - Mental status changes [None]
